FAERS Safety Report 4689351-3 (Version None)
Quarter: 2005Q2

REPORT INFORMATION
  Report Type: 
  Country: None (occurrence: None)
  Receive Date: 20050608
  Receipt Date: 20050224
  Transmission Date: 20051028
  Serious: No
  Sender: FDA-Public Use
  Company Number: 2005-BP-02995BP

PATIENT
  Age: 75 Year
  Sex: Female

DRUGS (9)
  1. SPIRIVA [Suspect]
     Indication: CHRONIC OBSTRUCTIVE PULMONARY DISEASE
     Dosage: SEE TEXT (18 MCG, 2 INHALATIONS), IH
     Route: 055
     Dates: start: 20050215, end: 20050215
  2. SPIRIVA [Suspect]
     Indication: EMPHYSEMA
     Dosage: SEE TEXT (18 MCG, 2 INHALATIONS), IH
     Route: 055
     Dates: start: 20050215, end: 20050215
  3. SYNTHROID [Concomitant]
  4. TRIAMTERENE AND HYDROCHLOROTHIAZIDE [Concomitant]
  5. MICARDIS [Concomitant]
  6. ACTONEL [Concomitant]
  7. ASPIRIN [Concomitant]
  8. MULTIVITAMIN [Concomitant]
  9. VITAMIN E [Concomitant]

REACTIONS (3)
  - ANXIETY [None]
  - BALANCE DISORDER [None]
  - FALL [None]
